FAERS Safety Report 8513590-4 (Version None)
Quarter: 2012Q3

REPORT INFORMATION
  Report Type: 
  Country: None (occurrence: None)
  Receive Date: 20120717
  Receipt Date: 20120712
  Transmission Date: 20120928
  Serious: Yes (Other)
  Sender: FDA-Public Use
  Company Number: US-PFIZER INC-2012168792

PATIENT
  Sex: Female
  Weight: 95.2 kg

DRUGS (1)
  1. LYRICA [Suspect]
     Indication: MYALGIA
     Dosage: 25 MG, 2X/DAY
     Route: 048
     Dates: end: 20120709

REACTIONS (1)
  - TREMOR [None]
